FAERS Safety Report 17018198 (Version 5)
Quarter: 2020Q3

REPORT INFORMATION
  Report Type: Spontaneous
  Country: US (occurrence: US)
  Receive Date: 20191111
  Receipt Date: 20200811
  Transmission Date: 20201102
  Serious: Yes (Other)
  Sender: FDA-Public Use
  Company Number: US-ACTELION-A-NJ2019-197794

PATIENT
  Age: 66 Year
  Sex: Female
  Weight: 53.06 kg

DRUGS (15)
  1. PROAIR HFA [Concomitant]
     Active Substance: ALBUTEROL SULFATE
     Dosage: 2 PUFF EVERY 6 HOURS
  2. ASPIRIN. [Concomitant]
     Active Substance: ASPIRIN
     Dosage: 81 MG, QD
  3. SPIRIVA [Concomitant]
     Active Substance: TIOTROPIUM BROMIDE MONOHYDRATE
     Dosage: 2 PUFFS DAILY
  4. SYMBICORT [Concomitant]
     Active Substance: BUDESONIDE\FORMOTEROL FUMARATE DIHYDRATE
     Dosage: 1 PUFF EVERY 12 HOURS
  5. DIAMOX SEQUELS [Concomitant]
     Active Substance: ACETAZOLAMIDE
     Dosage: 250 MG, QD
  6. ACETAZOLAMIDE. [Concomitant]
     Active Substance: ACETAZOLAMIDE
     Dosage: 250 MG, QD
     Dates: start: 20190919
  7. OXYGEN. [Concomitant]
     Active Substance: OXYGEN
  8. POTASSIUM [Concomitant]
     Active Substance: POTASSIUM
     Dosage: 20 MEQ, QD
  9. MULTIVITAMIN [Concomitant]
     Active Substance: VITAMINS
     Dosage: UNK, QD
  10. VIAGRA [Concomitant]
     Active Substance: SILDENAFIL CITRATE
     Dosage: 20 MG, TID
  11. OMEPRAZOLE. [Concomitant]
     Active Substance: OMEPRAZOLE
     Dosage: 40 MG, QD
  12. OPSUMIT [Suspect]
     Active Substance: MACITENTAN
     Indication: PULMONARY ARTERIAL HYPERTENSION
     Dosage: 10 MG, QD
     Route: 048
     Dates: start: 20191022
  13. DIGOXIN. [Concomitant]
     Active Substance: DIGOXIN
     Dosage: 125 MCG, QD
     Dates: start: 2013
  14. FUROSEMIDE. [Concomitant]
     Active Substance: FUROSEMIDE
     Dosage: 40 MG, QD
  15. METOPROLOL. [Concomitant]
     Active Substance: METOPROLOL
     Dosage: 25 MG 1/2 TAB BED TIME

REACTIONS (6)
  - Fall [Unknown]
  - Adverse event [Unknown]
  - Peripheral swelling [Unknown]
  - Chromaturia [Recovered/Resolved]
  - Dizziness [Unknown]
  - Hip fracture [Unknown]

NARRATIVE: CASE EVENT DATE: 20191028
